FAERS Safety Report 6101514-9 (Version None)
Quarter: 2009Q1

REPORT INFORMATION
  Report Type: 
  Country: None (occurrence: None)
  Receive Date: 20090304
  Receipt Date: 20090224
  Transmission Date: 20090719
  Serious: Yes (Hospitalization, Other)
  Sender: FDA-Public Use
  Company Number: DE-ASTRAZENECA-2009PK00665

PATIENT
  Age: 19 Month
  Sex: Male
  Weight: 11 kg

DRUGS (12)
  1. EMLA [Suspect]
     Indication: LOCAL ANAESTHESIA
     Route: 061
  2. DIAZEPAM [Concomitant]
     Indication: PAIN
     Route: 054
  3. ESKETAMINE [Concomitant]
     Indication: PAIN
     Route: 042
  4. ELECTROLYTE SOLUTIONS [Concomitant]
     Route: 042
  5. GLUCOSE SOLUTION [Concomitant]
     Route: 042
  6. MIDAZOLAM HCL [Concomitant]
     Indication: PREMEDICATION
     Route: 048
  7. MIDAZOLAM HCL [Concomitant]
     Indication: GRAND MAL CONVULSION
     Route: 048
  8. MIDAZOLAM HCL [Concomitant]
     Route: 042
  9. MIDAZOLAM HCL [Concomitant]
     Route: 042
  10. SEVOFLURANE [Concomitant]
     Indication: STUPOR
     Dosage: 4.2 VOL.-%
  11. REMIFENTANIL [Concomitant]
     Indication: STUPOR
     Dosage: 0.4 UG/KGKG/MIN
  12. MIVACURIUM [Concomitant]
     Indication: HYPOTONIA

REACTIONS (2)
  - METHAEMOGLOBINAEMIA [None]
  - OVERDOSE [None]
